FAERS Safety Report 15987750 (Version 1)
Quarter: 2019Q1

REPORT INFORMATION
  Report Type: Spontaneous
  Country: US (occurrence: US)
  Receive Date: 20190220
  Receipt Date: 20190220
  Transmission Date: 20190418
  Serious: No
  Sender: FDA-Public Use
  Company Number: US-AMPHASTAR PHARMACEUTICALS, INC.-2062984

PATIENT
  Age: 38 Year
  Sex: Female
  Weight: 63.64 kg

DRUGS (9)
  1. KETOROLAC TROMETHAMINE. [Suspect]
     Active Substance: KETOROLAC TROMETHAMINE
     Indication: PAIN
     Dates: start: 20180411
  2. DEXAMETHASONE SODIUM PHOSPHATE. [Concomitant]
     Active Substance: DEXAMETHASONE SODIUM PHOSPHATE
     Dates: start: 20180411
  3. TRIAMCINOLONE ACETONIDE. [Concomitant]
     Active Substance: TRIAMCINOLONE ACETONIDE
     Dates: start: 20180411
  4. DIAZEPAM. [Concomitant]
     Active Substance: DIAZEPAM
  5. PREDNISONE. [Concomitant]
     Active Substance: PREDNISONE
  6. NAPROSYN [Concomitant]
     Active Substance: NAPROXEN
  7. TIZANIDINE. [Concomitant]
     Active Substance: TIZANIDINE
  8. ZANAFLEX [Concomitant]
     Active Substance: TIZANIDINE HYDROCHLORIDE
  9. NAPROXEN. [Concomitant]
     Active Substance: NAPROXEN

REACTIONS (4)
  - Injection site discolouration [Unknown]
  - Injection site deformation [Unknown]
  - Injection site pain [Unknown]
  - Injection site reaction [Unknown]
